FAERS Safety Report 8510945-9 (Version None)
Quarter: 2012Q2

REPORT INFORMATION
  Report Type: 
  Country: None (occurrence: None)
  Receive Date: 20120406
  Receipt Date: 20120203
  Transmission Date: 20120825
  Serious: Yes (Hospitalization)
  Sender: FDA-Public Use
  Company Number: US-CYPR-2012-000006

PATIENT
  Sex: Male
  Weight: 95.2554 kg

DRUGS (6)
  1. PRAVASTATIN [Concomitant]
  2. PRASUGREL OR PLACEBO 10 MG [Suspect]
     Indication: ANTIPLATELET THERAPY
     Dosage: 10 MG QD ORAL
     Route: 048
     Dates: start: 20110514, end: 20120131
  3. CYPHER STENT [Concomitant]
  4. ASPIRIN [Suspect]
     Indication: CORONARY ARTERY DISEASE
     Dosage: 325 MG QD ORAL, 81 MG QD ORAL
     Route: 048
     Dates: start: 20120201
  5. ASPIRIN [Suspect]
     Indication: CORONARY ARTERY DISEASE
     Dosage: 325 MG QD ORAL, 81 MG QD ORAL
     Route: 048
     Dates: start: 20100519, end: 20120131
  6. FISH [Concomitant]

REACTIONS (1)
  - ANGINA UNSTABLE [None]
